FAERS Safety Report 5956382-2 (Version None)
Quarter: 2008Q4

REPORT INFORMATION
  Report Type: 
  Country: None (occurrence: None)
  Receive Date: 20081112
  Receipt Date: 20081027
  Transmission Date: 20090506
  Serious: Yes (Disabling, Other)
  Sender: FDA-Public Use
  Company Number: 035875

PATIENT
  Age: 75 Year
  Sex: Female
  Weight: 63.9 kg

DRUGS (6)
  1. ETHAMBUTOL HYDROCHLORIDE [Suspect]
     Indication: LUNG INFECTION
     Dosage: 3 TABLET, QD, ORAL
     Route: 048
     Dates: start: 20080201, end: 20080901
  2. CLARITHROMYCIN [Concomitant]
  3. RIFAMPICIN [Concomitant]
  4. COREG CR [Concomitant]
  5. LISNOPRIL (LISINOPRIL) [Concomitant]
  6. LASIX (GENERIC) (FUROSEMIDE) [Concomitant]

REACTIONS (6)
  - COLOUR BLINDNESS [None]
  - HALO VISION [None]
  - OPTIC NEURITIS [None]
  - VISION BLURRED [None]
  - VISUAL ACUITY REDUCED [None]
  - VISUAL IMPAIRMENT [None]
